FAERS Safety Report 22771931 (Version 8)
Quarter: 2023Q4

REPORT INFORMATION
  Report Type: Spontaneous
  Country: US (occurrence: US)
  Receive Date: 20230801
  Receipt Date: 20231212
  Transmission Date: 20240109
  Serious: No
  Sender: FDA-Public Use
  Company Number: US-PFIZER INC-PV202300128998

PATIENT
  Age: 9 Year
  Sex: Female

DRUGS (1)
  1. GENOTROPIN [Suspect]
     Active Substance: SOMATROPIN
     Dosage: 0.6 MG, DAILY
     Dates: start: 20230717

REACTIONS (5)
  - Incorrect dose administered [Unknown]
  - Poor quality device used [Unknown]
  - Device use error [Unknown]
  - Device leakage [Unknown]
  - Needle issue [Unknown]
